FAERS Safety Report 10628152 (Version 1)
Quarter: 2014Q4

REPORT INFORMATION
  Report Type: Spontaneous
  Country: US (occurrence: US)
  Receive Date: 20141205
  Receipt Date: 20141205
  Transmission Date: 20150529
  Serious: No
  Sender: FDA-Public Use
  Company Number: US-B.I. PHARMACEUTICALS,INC./RIDGEFIELD-2014-BI-57168BP

PATIENT
  Age: 82 Year
  Sex: Female

DRUGS (1)
  1. PRADAXA [Suspect]
     Active Substance: DABIGATRAN ETEXILATE MESYLATE
     Indication: ATRIAL FIBRILLATION
     Dosage: 300 MG
     Route: 048
     Dates: start: 20140731, end: 20141124

REACTIONS (6)
  - Glossodynia [Not Recovered/Not Resolved]
  - Oesophageal pain [Not Recovered/Not Resolved]
  - Cystitis [Recovered/Resolved]
  - Vaginal haemorrhage [Recovered/Resolved]
  - Abdominal discomfort [Not Recovered/Not Resolved]
  - Oral discomfort [Not Recovered/Not Resolved]

NARRATIVE: CASE EVENT DATE: 201410
